FAERS Safety Report 9170177 (Version 1)
Quarter: 2013Q1

REPORT INFORMATION
  Report Type: Spontaneous
  Country: CA (occurrence: CA)
  Receive Date: 20130319
  Receipt Date: 20130319
  Transmission Date: 20140127
  Serious: Yes (Other)
  Sender: FDA-Public Use
  Company Number: PHHY2013CA026060

PATIENT
  Age: 68 Year
  Sex: Female
  Weight: 86.6 kg

DRUGS (3)
  1. AFINITOR [Suspect]
     Indication: BREAST CANCER METASTATIC
     Dosage: 10 MG, DAILY
     Route: 048
     Dates: start: 20121211, end: 20130118
  2. ZOMETA [Suspect]
     Indication: METASTASES TO BONE
     Dosage: 3 MG, UNK
     Route: 042
     Dates: start: 20120306, end: 20130108
  3. AROMASIN [Concomitant]
     Dates: start: 201212

REACTIONS (4)
  - Pneumonitis [Recovering/Resolving]
  - Dyspnoea [Unknown]
  - Cough [Unknown]
  - Renal failure [Unknown]
